FAERS Safety Report 4870780-X (Version None)
Quarter: 2006Q1

REPORT INFORMATION
  Report Type: 
  Country: None (occurrence: None)
  Receive Date: 20060103
  Receipt Date: 20050929
  Transmission Date: 20060701
  Serious: Yes (Death, Hospitalization, Other)
  Sender: FDA-Public Use
  Company Number: US-MERCK-0510USA00439

PATIENT
  Age: 75 Year
  Sex: Female
  Weight: 68 kg

DRUGS (33)
  1. VIOXX [Suspect]
     Indication: INTERVERTEBRAL DISC DEGENERATION
     Route: 048
     Dates: end: 20000710
  2. VIOXX [Suspect]
     Route: 048
     Dates: start: 19991101
  3. VIOXX [Suspect]
     Route: 048
     Dates: start: 20000710, end: 20020901
  4. VIOXX [Suspect]
     Indication: OSTEOARTHRITIS
     Route: 048
     Dates: end: 20000710
  5. VIOXX [Suspect]
     Route: 048
     Dates: start: 19991101
  6. VIOXX [Suspect]
     Route: 048
     Dates: start: 20000710, end: 20020901
  7. DOXEPIN HYDROCHLORIDE [Concomitant]
     Route: 065
  8. ZOLOFT [Concomitant]
     Route: 065
  9. DARVON [Concomitant]
     Route: 065
  10. ZOCOR [Concomitant]
     Route: 065
  11. DETROL [Concomitant]
     Route: 065
  12. MECLIZINE [Concomitant]
     Route: 065
  13. PLAVIX [Concomitant]
     Route: 065
  14. ZYPREXA [Concomitant]
     Route: 065
  15. ACTONEL [Concomitant]
     Route: 065
  16. NITROGLYCERIN [Concomitant]
     Route: 065
  17. ZYRTEC [Concomitant]
     Route: 065
  18. MEDROL [Concomitant]
     Route: 065
  19. AMBIEN [Concomitant]
     Route: 065
  20. NORVASC [Concomitant]
     Route: 065
  21. METOPROLOL [Concomitant]
     Route: 065
  22. CELEXA [Concomitant]
     Route: 065
  23. KEFLEX [Concomitant]
     Route: 065
  24. AMOXICILLIN [Concomitant]
     Route: 065
  25. DITROPAN [Concomitant]
     Route: 065
  26. AVALIDE [Concomitant]
     Route: 065
  27. MACRODANTIN [Concomitant]
     Route: 065
  28. LORATADINE [Concomitant]
     Route: 065
  29. CIPRO [Concomitant]
     Route: 065
  30. HYOSCYAMINE SULFATE [Concomitant]
     Route: 065
  31. PREMARIN [Concomitant]
     Route: 065
  32. FLAGYL [Concomitant]
     Route: 065
  33. COUMADIN [Concomitant]
     Route: 065

REACTIONS (20)
  - ABDOMINAL PAIN [None]
  - ARTERIOSCLEROSIS CORONARY ARTERY [None]
  - ASTHENIA [None]
  - ATRIOVENTRICULAR BLOCK SECOND DEGREE [None]
  - CARDIAC FAILURE CONGESTIVE [None]
  - CEREBROVASCULAR ACCIDENT [None]
  - CONTUSION [None]
  - DEMENTIA [None]
  - DEPRESSION [None]
  - DIVERTICULITIS [None]
  - DRUG TOXICITY [None]
  - ESSENTIAL HYPERTENSION [None]
  - HERPES ZOSTER [None]
  - HYPERTENSIVE EMERGENCY [None]
  - LOSS OF CONSCIOUSNESS [None]
  - MENTAL STATUS CHANGES [None]
  - MYOCARDIAL INFARCTION [None]
  - PYELONEPHRITIS [None]
  - SYNCOPE [None]
  - WRIST FRACTURE [None]
